FAERS Safety Report 21725001 (Version 1)
Quarter: 2022Q4

REPORT INFORMATION
  Report Type: Spontaneous
  Country: US (occurrence: US)
  Receive Date: 20221214
  Receipt Date: 20221214
  Transmission Date: 20230113
  Serious: No
  Sender: FDA-Public Use
  Company Number: US-SA-SAC20221209001229

PATIENT
  Sex: Female
  Weight: 66 kg

DRUGS (7)
  1. DUPIXENT [Suspect]
     Active Substance: DUPILUMAB
     Indication: Nasal polyps
     Dosage: 300 MG, QOW
     Route: 058
  2. SIMPLY SALINE [Concomitant]
  3. BUDESONIDE [Concomitant]
     Active Substance: BUDESONIDE
  4. GENTAMICIN [Concomitant]
     Active Substance: GENTAMICIN
  5. ASPIRIN [Concomitant]
     Active Substance: ASPIRIN
  6. HYDROXYZINE HYDROCHLORIDE [Concomitant]
     Active Substance: HYDROXYZINE HYDROCHLORIDE
  7. ZOLOFT [Concomitant]
     Active Substance: SERTRALINE HYDROCHLORIDE

REACTIONS (2)
  - Influenza like illness [Recovered/Resolved]
  - Inappropriate schedule of product administration [Unknown]
